FAERS Safety Report 23546929 (Version 2)
Quarter: 2024Q1

REPORT INFORMATION
  Report Type: Spontaneous
  Country: KR (occurrence: KR)
  Receive Date: 20240221
  Receipt Date: 20240228
  Transmission Date: 20240409
  Serious: Yes (Hospitalization)
  Sender: FDA-Public Use
  Company Number: KR-Jerome Stevens Pharmaceuticals, Inc.-2153473

PATIENT
  Age: 70 Year
  Sex: Female

DRUGS (3)
  1. DIGOXIN [Suspect]
     Active Substance: DIGOXIN
  2. LOSARTAN [Suspect]
     Active Substance: LOSARTAN
  3. FUROSEMIDE [Suspect]
     Active Substance: FUROSEMIDE

REACTIONS (5)
  - Atrial tachycardia [Recovered/Resolved]
  - Blood magnesium decreased [Unknown]
  - Blood potassium decreased [Unknown]
  - Cardioactive drug level increased [Recovering/Resolving]
  - Atrioventricular block [Unknown]
